FAERS Safety Report 21181538 (Version 6)
Quarter: 2022Q4

REPORT INFORMATION
  Report Type: Spontaneous
  Country: US (occurrence: US)
  Receive Date: 20220806
  Receipt Date: 20221102
  Transmission Date: 20230112
  Serious: Yes (Hospitalization, Other)
  Sender: FDA-Public Use
  Company Number: US-SA-SAC20220802000235

PATIENT
  Age: 51 Year
  Sex: Female

DRUGS (65)
  1. DUPIXENT [Suspect]
     Active Substance: DUPILUMAB
     Indication: Asthma
     Dosage: 300 MG, QOW
     Route: 058
     Dates: start: 20190315
  2. ATROPINE\DIPHENOXYLATE [Concomitant]
     Active Substance: ATROPINE\DIPHENOXYLATE
     Dosage: UNK
  3. FLONASE ALLERGY RELIEF [Concomitant]
     Active Substance: FLUTICASONE PROPIONATE
     Dosage: UNK
  4. FLONASE ALLERGY RELIEF [Concomitant]
     Active Substance: FLUTICASONE PROPIONATE
     Dosage: UNK
  5. GAMMAGARD [Concomitant]
     Active Substance: HUMAN IMMUNOGLOBULIN G
     Dosage: UNK
  6. GAMMAGARD [Concomitant]
     Active Substance: HUMAN IMMUNOGLOBULIN G
     Dosage: UNK
  7. ALPHA LIPOIC ACID [Concomitant]
     Active Substance: .ALPHA.-LIPOIC ACID
     Dosage: 100 MG
  8. MECLIZINE HYDROCHLORIDE [Concomitant]
     Active Substance: MECLIZINE HYDROCHLORIDE
     Dosage: 125 MG
  9. MECLIZINE HYDROCHLORIDE [Concomitant]
     Active Substance: MECLIZINE HYDROCHLORIDE
     Dosage: UNK
  10. ACETYLCYSTEINE [Concomitant]
     Active Substance: ACETYLCYSTEINE
     Dosage: 125 MG
  11. ACETYLCYSTEINE [Concomitant]
     Active Substance: ACETYLCYSTEINE
     Dosage: UNK
  12. ALBUTEROL\IPRATROPIUM [Concomitant]
     Active Substance: ALBUTEROL\IPRATROPIUM
     Dosage: 25 MG
  13. ALBUTEROL\IPRATROPIUM [Concomitant]
     Active Substance: ALBUTEROL\IPRATROPIUM
     Dosage: UNK
  14. DIPHENHYDRAMINE HYDROCHLORIDE\GUAIFENESIN [Concomitant]
     Active Substance: DIPHENHYDRAMINE HYDROCHLORIDE\GUAIFENESIN
     Dosage: 325 MG
  15. TYLENOL [Concomitant]
     Active Substance: ACETAMINOPHEN
     Dosage: 25 MG
  16. TYLENOL [Concomitant]
     Active Substance: ACETAMINOPHEN
  17. DOXEPIN [Concomitant]
     Active Substance: DOXEPIN
     Dosage: 100 MG
  18. SODIUM CHLORIDE [Concomitant]
     Active Substance: SODIUM CHLORIDE
     Dosage: 100 MG
  19. SODIUM CHLORIDE [Concomitant]
     Active Substance: SODIUM CHLORIDE
  20. HYDROXYCHLOROQUINE SULFATE [Concomitant]
     Active Substance: HYDROXYCHLOROQUINE SULFATE
     Dosage: 10 MG
  21. HYDROXYCHLOROQUINE SULFATE [Concomitant]
     Active Substance: HYDROXYCHLOROQUINE SULFATE
  22. ESCITALOPRAM OXALATE [Concomitant]
     Active Substance: ESCITALOPRAM OXALATE
     Dosage: 10 MG
  23. ESCITALOPRAM OXALATE [Concomitant]
     Active Substance: ESCITALOPRAM OXALATE
  24. LEFLUNOMIDE [Concomitant]
     Active Substance: LEFLUNOMIDE
     Dosage: 10 MG
  25. LEFLUNOMIDE [Concomitant]
     Active Substance: LEFLUNOMIDE
  26. CUVITRU [Concomitant]
     Active Substance: HUMAN IMMUNOGLOBULIN G
     Dosage: 10 MG
  27. CUVITRU [Concomitant]
     Active Substance: HUMAN IMMUNOGLOBULIN G
  28. KIOVIG [Concomitant]
     Active Substance: HUMAN IMMUNOGLOBULIN G
  29. VITAMIN B12 [Concomitant]
     Active Substance: CYANOCOBALAMIN
     Dosage: UNK
  30. SYMBICORT [Concomitant]
     Active Substance: BUDESONIDE\FORMOTEROL FUMARATE DIHYDRATE
     Dosage: UNK
  31. SYMBICORT [Concomitant]
     Active Substance: BUDESONIDE\FORMOTEROL FUMARATE DIHYDRATE
  32. LUMIGAN [Concomitant]
     Active Substance: BIMATOPROST
     Dosage: 25 MG
  33. LUMIGAN [Concomitant]
     Active Substance: BIMATOPROST
  34. TOPIRAMATE [Concomitant]
     Active Substance: TOPIRAMATE
  35. TOPIRAMATE [Concomitant]
     Active Substance: TOPIRAMATE
  36. ATORVASTATIN CALCIUM [Concomitant]
     Active Substance: ATORVASTATIN CALCIUM
     Dosage: 3 MG
  37. ATORVASTATIN CALCIUM [Concomitant]
     Active Substance: ATORVASTATIN CALCIUM
     Dosage: UNK
  38. EPIPEN [Concomitant]
     Active Substance: EPINEPHRINE
     Dosage: 40 MG
  39. EPIPEN [Concomitant]
     Active Substance: EPINEPHRINE
     Dosage: UNK
  40. PROAIR HFA [Concomitant]
     Active Substance: ALBUTEROL SULFATE
     Dosage: 3 MG
  41. PROAIR HFA [Concomitant]
     Active Substance: ALBUTEROL SULFATE
     Dosage: UNK
  42. TIZANIDINE [Concomitant]
     Active Substance: TIZANIDINE
     Dosage: 4 MG
  43. GABAPENTIN [Concomitant]
     Active Substance: GABAPENTIN
     Dosage: 4MG
  44. GABAPENTIN [Concomitant]
     Active Substance: GABAPENTIN
  45. HYDROXYZINE [Concomitant]
     Active Substance: HYDROXYZINE HYDROCHLORIDE
     Dosage: 50MG
  46. PLAVIX [Concomitant]
     Active Substance: CLOPIDOGREL BISULFATE
     Dosage: 25MG
  47. PLAVIX [Concomitant]
     Active Substance: CLOPIDOGREL BISULFATE
  48. RAMIPRIL [Concomitant]
     Active Substance: RAMIPRIL
     Dosage: 40MG
  49. RAMIPRIL [Concomitant]
     Active Substance: RAMIPRIL
  50. FUROSEMIDE [Concomitant]
     Active Substance: FUROSEMIDE
     Dosage: 25MG
  51. FUROSEMIDE [Concomitant]
     Active Substance: FUROSEMIDE
  52. BUSPIRONE [Concomitant]
     Active Substance: BUSPIRONE HYDROCHLORIDE
     Dosage: 10MG
  53. POTASSIUM CHLORIDE [Concomitant]
     Active Substance: POTASSIUM CHLORIDE
     Dosage: 300MG
  54. POTASSIUM CHLORIDE [Concomitant]
     Active Substance: POTASSIUM CHLORIDE
  55. LAMOTRIGINE [Concomitant]
     Active Substance: LAMOTRIGINE
     Dosage: 300MG
  56. LAMOTRIGINE [Concomitant]
     Active Substance: LAMOTRIGINE
  57. VITAMIN D3 [Concomitant]
     Active Substance: CHOLECALCIFEROL
  58. VITAMIN D3 [Concomitant]
     Active Substance: CHOLECALCIFEROL
  59. MAGNESIUM [Concomitant]
     Active Substance: MAGNESIUM
     Dosage: UNK
  60. ALFA LIPOIC ACID [Concomitant]
  61. AIMOVIG [Concomitant]
     Active Substance: ERENUMAB-AOOE
  62. DOXEPIN HCL [Concomitant]
     Active Substance: DOXEPIN HYDROCHLORIDE
  63. TIZANIDINE HYDROCHLORIDE [Concomitant]
     Active Substance: TIZANIDINE HYDROCHLORIDE
  64. HYDROXYZINE HYDROCHLORIDE [Concomitant]
     Active Substance: HYDROXYZINE HYDROCHLORIDE
  65. BUSPIRONE HCL [Concomitant]
     Active Substance: BUSPIRONE HYDROCHLORIDE

REACTIONS (10)
  - Pneumonia [Unknown]
  - Seizure [Unknown]
  - Pulmonary hypertension [Unknown]
  - Oxygen saturation decreased [Unknown]
  - Sinusitis [Unknown]
  - Cough [Unknown]
  - Asthma [Unknown]
  - Illness [Unknown]
  - Dyspnoea [Unknown]
  - Immune system disorder [Unknown]

NARRATIVE: CASE EVENT DATE: 20220101
